FAERS Safety Report 8599922-X (Version None)
Quarter: 2012Q3

REPORT INFORMATION
  Report Type: 
  Country: None (occurrence: None)
  Receive Date: 20120816
  Receipt Date: 20120327
  Transmission Date: 20120928
  Serious: No
  Sender: FDA-Public Use
  Company Number: US-AMGEN-USASP2010008427

PATIENT
  Age: 73 Year
  Sex: Male

DRUGS (1)
  1. NPLATE [Suspect]
     Indication: IDIOPATHIC THROMBOCYTOPENIC PURPURA
     Dosage: 250 MUG, QWK
     Dates: start: 20101104

REACTIONS (2)
  - BRONCHITIS [None]
  - NIGHT SWEATS [None]
